FAERS Safety Report 8522476-0 (Version None)
Quarter: 2012Q3

REPORT INFORMATION
  Report Type: 
  Country: None (occurrence: None)
  Receive Date: 20120719
  Receipt Date: 20120717
  Transmission Date: 20120928
  Serious: Yes (Death, Hospitalization)
  Sender: FDA-Public Use
  Company Number: US-ELI_LILLY_AND_COMPANY-US201207005193

PATIENT
  Sex: Male

DRUGS (9)
  1. VITAMIN B-12 [Concomitant]
  2. TYLENOL                                 /SCH/ [Concomitant]
     Dosage: 500 MG, BID
  3. ATENOLOL [Concomitant]
     Dosage: 25 MG, QD
  4. WARFARIN SODIUM [Concomitant]
     Dosage: UNK, QD
  5. ALIMTA [Suspect]
     Indication: LUNG NEOPLASM MALIGNANT
     Dosage: 1000 MG, UNKNOWN
     Route: 042
     Dates: start: 20120604
  6. FOLIC ACID [Concomitant]
     Dosage: 1 MG, QD
  7. FUROSEMIDE [Concomitant]
     Dosage: 20 MG, BID
  8. GEMFIBROZIL [Concomitant]
     Dosage: 600 MG, BID
  9. LISINOPRIL [Concomitant]
     Dosage: 2.5 MG, QD

REACTIONS (4)
  - ORAL PAIN [None]
  - RESPIRATORY FAILURE [None]
  - DEATH [None]
  - SEPTIC SHOCK [None]
